FAERS Safety Report 6595821-3 (Version None)
Quarter: 2010Q1

REPORT INFORMATION
  Report Type: 
  Country: None (occurrence: None)
  Receive Date: 20100219
  Receipt Date: 20100219
  Transmission Date: 20100710
  Serious: Yes (Hospitalization, Disabling, Other)
  Sender: FDA-Public Use
  Company Number: None

PATIENT
  Age: 36 Year
  Sex: Male
  Weight: 63.5036 kg

DRUGS (2)
  1. ALPRAZOLAM [Suspect]
     Indication: SCHIZOAFFECTIVE DISORDER
     Dosage: 4 A DAY XENAX 2 YRS PERIOD
  2. RESPADOL [Suspect]
     Indication: BORDERLINE PERSONALITY DISORDER

REACTIONS (3)
  - DRUG DEPENDENCE [None]
  - HOMICIDE [None]
  - POLYSUBSTANCE DEPENDENCE [None]
